FAERS Safety Report 8574086-7 (Version None)
Quarter: 2012Q3

REPORT INFORMATION
  Report Type: 
  Country: None (occurrence: None)
  Receive Date: 20120806
  Receipt Date: 20120731
  Transmission Date: 20120928
  Serious: Yes (Other)
  Sender: FDA-Public Use
  Company Number: PHHY2012US066014

PATIENT
  Age: 14 Month
  Sex: Male

DRUGS (2)
  1. MELPHALAN HYDROCHLORIDE [Suspect]
     Indication: RETINOBLASTOMA
     Dosage: 5 MG, UNK
     Route: 013
  2. CARBOPLATIN [Suspect]
     Indication: RETINOBLASTOMA
     Dosage: 30 MG, UNK
     Route: 013

REACTIONS (2)
  - IRIS NEOVASCULARISATION [None]
  - RETINAL ARTERY OCCLUSION [None]
